FAERS Safety Report 6988265-3 (Version None)
Quarter: 2010Q3

REPORT INFORMATION
  Report Type: 
  Country: None (occurrence: None)
  Receive Date: 20100916
  Receipt Date: 20100908
  Transmission Date: 20110219
  Serious: Yes (Other)
  Sender: FDA-Public Use
  Company Number: US-JNJFOC-20100304716

PATIENT
  Sex: Female

DRUGS (3)
  1. DURAGESIC-100 [Suspect]
     Indication: PAIN
     Dosage: 100UG/HR+100UG/HR
     Route: 062
  2. DURAGESIC-100 [Suspect]
     Dosage: 100UG/HR 100UG/HR
     Route: 062
  3. STEROIDS NOS [Suspect]
     Indication: INTERSTITIAL LUNG DISEASE
     Route: 065

REACTIONS (10)
  - BONE DENSITY DECREASED [None]
  - BONE DISORDER [None]
  - DERMATITIS CONTACT [None]
  - FRACTURE [None]
  - IMPAIRED HEALING [None]
  - INTERSTITIAL LUNG DISEASE [None]
  - OSTEONECROSIS [None]
  - PRODUCT QUALITY ISSUE [None]
  - THERAPEUTIC RESPONSE DECREASED [None]
  - WRONG TECHNIQUE IN DRUG USAGE PROCESS [None]
